FAERS Safety Report 24122295 (Version 2)
Quarter: 2024Q3

REPORT INFORMATION
  Report Type: Spontaneous
  Country: CA (occurrence: CA)
  Receive Date: 20240722
  Receipt Date: 20240827
  Transmission Date: 20241017
  Serious: Yes (Other)
  Sender: SANDOZ
  Company Number: CA-SANDOZ-SDZ2024CA066477

PATIENT
  Age: 51 Year
  Sex: Male

DRUGS (1)
  1. HYRIMOZ [Suspect]
     Active Substance: ADALIMUMAB-ADAZ
     Indication: Ankylosing spondylitis
     Dosage: 40 MG, Q2W (EVERY TWO WEEKS)
     Route: 058
     Dates: start: 20220504

REACTIONS (3)
  - Hip surgery [Unknown]
  - General physical health deterioration [Unknown]
  - Joint stiffness [Recovered/Resolved]

NARRATIVE: CASE EVENT DATE: 20231101
